FAERS Safety Report 7263205-0 (Version None)
Quarter: 2011Q1

REPORT INFORMATION
  Report Type: 
  Country: None (occurrence: None)
  Receive Date: 20110130
  Receipt Date: 20101011
  Transmission Date: 20110831
  Serious: Yes (Hospitalization)
  Sender: FDA-Public Use
  Company Number: US-ABBOTT-10P-163-0677990-00

PATIENT
  Sex: Female
  Weight: 86.26 kg

DRUGS (5)
  1. UNKNOWN OTC SLEEP AID [Concomitant]
     Indication: INSOMNIA
  2. HUMIRA [Suspect]
     Indication: CROHN'S DISEASE
     Dates: start: 20080101, end: 20080701
  3. HUMIRA [Suspect]
     Dates: start: 20090101
  4. HUMIRA [Suspect]
     Dates: start: 20080101, end: 20091001
  5. AMBIEN [Concomitant]
     Indication: INSOMNIA

REACTIONS (2)
  - CROHN'S DISEASE [None]
  - INJECTION SITE DISCOMFORT [None]
